FAERS Safety Report 5314162-5 (Version None)
Quarter: 2007Q2

REPORT INFORMATION
  Report Type: 
  Country: None (occurrence: None)
  Receive Date: 20070426
  Receipt Date: 20070418
  Transmission Date: 20071010
  Serious: Yes (Hospitalization)
  Sender: FDA-Public Use
  Company Number: 2007SP003233

PATIENT
  Sex: Male

DRUGS (1)
  1. TEMODAL [Suspect]
     Indication: METASTATIC MALIGNANT MELANOMA
     Dosage: 200 MG/M2; QD
     Dates: start: 20070101, end: 20070201

REACTIONS (6)
  - ANAEMIA [None]
  - APLASIA [None]
  - DRUG ADMINISTRATION ERROR [None]
  - FEBRILE NEUTROPENIA [None]
  - MEDICATION ERROR [None]
  - THROMBOCYTOPENIA [None]
